FAERS Safety Report 8041874-5 (Version None)
Quarter: 2012Q1

REPORT INFORMATION
  Report Type: 
  Country: None (occurrence: None)
  Receive Date: 20120112
  Receipt Date: 20120106
  Transmission Date: 20120608
  Serious: Yes (Other)
  Sender: FDA-Public Use
  Company Number: US-BAYER-2012-002437

PATIENT
  Sex: Female

DRUGS (3)
  1. YAZ [Suspect]
     Dosage: UNK
     Dates: start: 20061101
  2. DROSPIRENONE AND ETHINYL ESTRADIOL [Suspect]
     Dosage: UNK
     Dates: start: 20061101
  3. YASMIN [Suspect]
     Dosage: UNK
     Dates: start: 20061101

REACTIONS (4)
  - GALLBLADDER DISORDER [None]
  - INJURY [None]
  - FEAR [None]
  - PAIN [None]
